FAERS Safety Report 9163333 (Version 1)
Quarter: 2013Q1

REPORT INFORMATION
  Report Type: Spontaneous
  Country: GB (occurrence: GB)
  Receive Date: 20130314
  Receipt Date: 20130314
  Transmission Date: 20140127
  Serious: Yes (Other)
  Sender: FDA-Public Use
  Company Number: GB-ROCHE-1200562

PATIENT
  Age: 63 Year
  Sex: Female
  Weight: 70 kg

DRUGS (5)
  1. ROACTEMRA [Suspect]
     Indication: STILL^S DISEASE ADULT ONSET
     Route: 042
     Dates: start: 20090301, end: 20121211
  2. NAPROXEN [Concomitant]
  3. PREDNISOLONE [Concomitant]
  4. SALAZOPYRIN [Concomitant]
  5. SIMVASTATIN [Concomitant]

REACTIONS (5)
  - Blood bilirubin increased [Unknown]
  - Haemoglobin decreased [Unknown]
  - Haemolytic anaemia [Not Recovered/Not Resolved]
  - Haptoglobin decreased [Unknown]
  - Mean cell volume increased [Unknown]
